FAERS Safety Report 5362644-2 (Version None)
Quarter: 2007Q2

REPORT INFORMATION
  Report Type: 
  Country: None (occurrence: None)
  Receive Date: 20070530
  Receipt Date: 20070212
  Transmission Date: 20071010
  Serious: No
  Sender: FDA-Public Use
  Company Number: 2007PV030003

PATIENT
  Age: 78 Year
  Sex: Male
  Weight: 105.2345 kg

DRUGS (5)
  1. BYETTA [Suspect]
     Indication: DIABETES MELLITUS NON-INSULIN-DEPENDENT
     Dosage: 5 MCG;BID;SC
     Route: 058
     Dates: start: 20061201, end: 20070212
  2. METFORMIN HCL [Concomitant]
  3. AVANDIA [Concomitant]
  4. GLUCOTROL [Concomitant]
  5. AVANDAMET [Concomitant]

REACTIONS (2)
  - BLOOD GLUCOSE INCREASED [None]
  - WEIGHT INCREASED [None]
